FAERS Safety Report 8540538-9 (Version None)
Quarter: 2012Q3

REPORT INFORMATION
  Report Type: 
  Country: None (occurrence: None)
  Receive Date: 20120726
  Receipt Date: 20120109
  Transmission Date: 20120928
  Serious: No
  Sender: FDA-Public Use
  Company Number: US-ASTRAZENECA-2011SE46686

PATIENT
  Age: 29 Year
  Sex: Female

DRUGS (29)
  1. SEROQUEL [Suspect]
     Route: 048
     Dates: start: 20070828
  2. SEROQUEL [Suspect]
     Dosage: 200 MG HALF TO ONE AT NIGHT
     Route: 048
     Dates: start: 20100302, end: 20110726
  3. NAPROXEN [Concomitant]
     Indication: ARTHRALGIA
  4. LAMICTAL [Concomitant]
  5. GEODON [Concomitant]
  6. GEODON [Concomitant]
  7. GEODON [Concomitant]
  8. VALIUM [Concomitant]
     Dosage: 10 MG, HALF TO ONE BID PRN
  9. SEROQUEL [Suspect]
     Route: 048
     Dates: start: 20071002
  10. SEROQUEL [Suspect]
     Route: 048
     Dates: start: 20071108
  11. SEROQUEL [Suspect]
     Route: 048
     Dates: start: 20100330
  12. RISPERDAL [Concomitant]
  13. RISPERDAL [Concomitant]
     Dosage: 1 MG, 3- 3 BID
  14. CARBAMAZEPINE [Concomitant]
  15. LEXAPRO [Concomitant]
  16. RISPERDAL [Concomitant]
     Dosage: 1 MG, 2 TO 3 BID
  17. XANAX [Concomitant]
     Dosage: 0.5 MG BID PRN
  18. LAMICTAL [Concomitant]
  19. ZYPREXA [Concomitant]
     Dosage: 5 MG, 1-2 AT NIGHT PRN
  20. SEROQUEL [Suspect]
     Indication: SCHIZOAFFECTIVE DISORDER
     Route: 048
     Dates: start: 20070716, end: 20080331
  21. XANAX [Concomitant]
  22. CARBAMAZEPINE [Concomitant]
  23. AMBIEN [Concomitant]
     Indication: SLEEP DISORDER
  24. SEROQUEL [Suspect]
     Route: 048
     Dates: start: 20100419
  25. LAMICTAL [Concomitant]
  26. SAPHRIS [Concomitant]
  27. SAPHRIS [Concomitant]
  28. NAPROXEN [Concomitant]
     Indication: MUSCLE SPASMS
  29. ABILIFY [Concomitant]

REACTIONS (5)
  - PUPIL FIXED [None]
  - HYPOTHYROIDISM [None]
  - PHOTOPHOBIA [None]
  - INFECTION [None]
  - COLOUR BLINDNESS [None]
